FAERS Safety Report 19259430 (Version 1)
Quarter: 2021Q2

REPORT INFORMATION
  Report Type: Spontaneous
  Country: US (occurrence: US)
  Receive Date: 20210514
  Receipt Date: 20210514
  Transmission Date: 20210717
  Serious: Yes (Hospitalization)
  Sender: FDA-Public Use
  Company Number: US-BAUSCH-BL-2021-016649

PATIENT
  Age: 71 Year
  Sex: Female

DRUGS (3)
  1. TRAMADOL. [Interacting]
     Active Substance: TRAMADOL
     Indication: PROCEDURAL PAIN
     Route: 065
  2. TETRABENAZINE. [Suspect]
     Active Substance: TETRABENAZINE
     Indication: TARDIVE DYSKINESIA
     Route: 065
  3. PIPERACILLIN/TAZOBACTAM [Concomitant]
     Active Substance: PIPERACILLIN SODIUM\TAZOBACTAM SODIUM
     Indication: PNEUMONIA ASPIRATION

REACTIONS (5)
  - Drug interaction [Unknown]
  - Delirium [Recovered/Resolved]
  - Tardive dyskinesia [Recovered/Resolved]
  - Multiple drug therapy [Unknown]
  - Condition aggravated [Recovered/Resolved]
